FAERS Safety Report 9886915 (Version 2)
Quarter: 2014Q1

REPORT INFORMATION
  Report Type: Report from Study
  Country: CO (occurrence: CO)
  Receive Date: 20140210
  Receipt Date: 20140215
  Transmission Date: 20141002
  Serious: Yes (Death, Hospitalization)
  Sender: FDA-Public Use
  Company Number: CO-ROCHE-1346155

PATIENT
  Age: 78 Year
  Sex: Female

DRUGS (5)
  1. RANIBIZUMAB [Suspect]
     Indication: MACULAR DEGENERATION
     Route: 050
     Dates: start: 201309
  2. RANIBIZUMAB [Suspect]
     Route: 050
     Dates: start: 20131126
  3. GLIBENCLAMIDE [Concomitant]
     Route: 065
  4. INSULIN [Concomitant]
  5. AMLODIPINE BESILATE [Concomitant]

REACTIONS (5)
  - Infarction [Fatal]
  - Hearing impaired [Unknown]
  - Bacterial infection [Unknown]
  - Sepsis [Unknown]
  - Pyrexia [Unknown]
